FAERS Safety Report 9239762 (Version 2)
Quarter: 2013Q2

REPORT INFORMATION
  Report Type: Spontaneous
  Country: FR (occurrence: FR)
  Receive Date: 20130418
  Receipt Date: 20130426
  Transmission Date: 20140414
  Serious: Yes (Hospitalization)
  Sender: FDA-Public Use
  Company Number: FR-PFIZER INC-2013116901

PATIENT
  Age: 58 Year
  Sex: Male

DRUGS (10)
  1. SOLU-MEDROL [Suspect]
     Indication: ANTIEMETIC SUPPORTIVE CARE
     Dosage: 120 MG, CYCLIC
     Route: 042
     Dates: start: 20121122, end: 20121122
  2. FLUOROURACIL MYLAN [Suspect]
     Indication: ADENOCARCINOMA
     Dosage: 5050 MG, CYCLIC
     Route: 042
     Dates: start: 20121025
  3. FLUOROURACIL MYLAN [Suspect]
     Indication: COLON CANCER
     Dosage: 5050 MG, CYCLIC
     Route: 042
     Dates: start: 20121122
  4. IRINOTECAN MYLAN [Suspect]
     Indication: ADENOCARCINOMA
     Dosage: 320 MG, CYCLIC
     Route: 042
     Dates: start: 20121025, end: 20121025
  5. IRINOTECAN MYLAN [Suspect]
     Indication: COLON CANCER
     Dosage: 320 MG, CYCLIC
     Route: 042
     Dates: start: 20121122, end: 20121122
  6. AVASTIN [Suspect]
     Indication: COLON CANCER
     Dosage: 500 MG, CYCLIC
     Route: 042
     Dates: start: 20121025
  7. AVASTIN [Suspect]
     Indication: ADENOCARCINOMA
     Dosage: 500 MG, CYCLIC
     Route: 042
     Dates: start: 20121122
  8. METFORMIN [Suspect]
     Dosage: 850 MG, 2X/DAY
     Route: 048
     Dates: end: 20121125
  9. ZOCOR [Concomitant]
     Dosage: 20 MG DAILY
  10. ESOMEPRAZOLE [Concomitant]
     Dosage: 40 MG

REACTIONS (3)
  - Diabetic hyperosmolar coma [Recovered/Resolved]
  - Dysphagia [None]
  - Vomiting [None]
